FAERS Safety Report 14336971 (Version 1)
Quarter: 2017Q4

REPORT INFORMATION
  Report Type: Spontaneous
  Country: US (occurrence: US)
  Receive Date: 20171228
  Receipt Date: 20171228
  Transmission Date: 20180321
  Serious: Yes (Hospitalization, Other)
  Sender: FDA-Public Use
  Company Number: None

PATIENT
  Age: 45 Year
  Sex: Female
  Weight: 84.6 kg

DRUGS (2)
  1. PROLIA [Suspect]
     Active Substance: DENOSUMAB
     Indication: OSTEOPOROSIS
     Dosage: ?          OTHER FREQUENCY:ONE TIME;?
     Route: 058
     Dates: start: 20171129
  2. PROLIA [Suspect]
     Active Substance: DENOSUMAB
     Indication: DRUG INTOLERANCE
     Dosage: ?          OTHER FREQUENCY:ONE TIME;?
     Route: 058
     Dates: start: 20171129

REACTIONS (1)
  - Hypocalcaemia [None]

NARRATIVE: CASE EVENT DATE: 20171129
